FAERS Safety Report 9789801 (Version 1)
Quarter: 2013Q4

REPORT INFORMATION
  Report Type: Spontaneous
  Country: IT (occurrence: None)
  Receive Date: 20131227
  Receipt Date: 20131227
  Transmission Date: 20140711
  Serious: Yes (Other)
  Sender: FDA-Public Use
  Company Number: AUR-APL-2013-10696

PATIENT
  Age: 80 Year
  Sex: Male

DRUGS (8)
  1. CITALOPRAM [Suspect]
     Indication: ANXIETY
     Dosage: 1 DOSAGE FORMS, 1D
     Route: 048
     Dates: start: 20130101
  2. LANOXIN (DIGOXIN) [Concomitant]
  3. FOLINA (FOLIC ACID) [Concomitant]
  4. FERRO-GRAD (FERROUS SULFATE) [Concomitant]
  5. SPIRIVA (TIOTROPIUM BROMIDE) (TIOTROPIUM BROMIDE) [Concomitant]
  6. LANSOX (LANSOPRAZOLE) [Concomitant]
  7. CITALOPRAM (CITALOPRAM) [Concomitant]
  8. LOSARTAN (LOSARTAN) [Concomitant]

REACTIONS (3)
  - Hyposideraemia [None]
  - Anaemia [None]
  - Gastrointestinal haemorrhage [None]
